FAERS Safety Report 13878815 (Version 1)
Quarter: 2017Q3

REPORT INFORMATION
  Report Type: Spontaneous
  Country: ES (occurrence: ES)
  Receive Date: 20170817
  Receipt Date: 20170817
  Transmission Date: 20171127
  Serious: Yes (Other)
  Sender: FDA-Public Use
  Company Number: ES-PFIZER INC-2017351601

PATIENT
  Age: 49 Year
  Sex: Female

DRUGS (6)
  1. METFORMIN [Concomitant]
     Active Substance: METFORMIN HYDROCHLORIDE
     Indication: DIABETES MELLITUS
     Dosage: 1 TABLET, 3X/DAY
  2. SOMAVERT [Suspect]
     Active Substance: PEGVISOMANT
     Indication: ACROMEGALY
     Dosage: EVERY DAY ALTERNATING DOSE OF 30 MG ONE DAY AND 20 MG THE OTHER DAY
     Route: 058
     Dates: start: 20061201
  3. SANDOSTATIN [Suspect]
     Active Substance: OCTREOTIDE ACETATE
     Indication: ACROMEGALY
     Dosage: 1 INJECTION EVERY 28 DAYS
  4. ATORVASTATIN [Concomitant]
     Active Substance: ATORVASTATIN
     Indication: HYPERCHOLESTEROLAEMIA
     Dosage: 1 TABLET, 1X/DAY
  5. TIADIPONA [Concomitant]
     Indication: HYPERTENSION
     Dosage: 1 TABLET, 2X/DAY (1 TABLET AT MIDDAY AND 1 TABLET AT NIGHT)
  6. ENALAPRIL [Concomitant]
     Active Substance: ENALAPRIL
     Indication: HYPERTENSION
     Dosage: 1 TABLET, 1X/DAY

REACTIONS (7)
  - Thinking abnormal [Not Recovered/Not Resolved]
  - Breast cancer [Unknown]
  - Injection site haematoma [Recovered/Resolved]
  - Injection site pain [Recovered/Resolved]
  - Flatulence [Unknown]
  - Incorrect dose administered [Unknown]
  - Chest pain [Unknown]

NARRATIVE: CASE EVENT DATE: 201611
